FAERS Safety Report 17157649 (Version 1)
Quarter: 2019Q4

REPORT INFORMATION
  Report Type: Spontaneous
  Country: US (occurrence: US)
  Receive Date: 20191216
  Receipt Date: 20191216
  Transmission Date: 20200122
  Serious: No
  Sender: FDA-Public Use
  Company Number: US-ENDO PHARMACEUTICALS INC-2019-107971

PATIENT
  Age: 59 Year
  Sex: Male
  Weight: 83.9 kg

DRUGS (4)
  1. MULTIVITAMIN                       /00097801/ [Concomitant]
     Active Substance: VITAMINS
     Indication: PRODUCT USED FOR UNKNOWN INDICATION
  2. XIAFLEX [Suspect]
     Active Substance: COLLAGENASE CLOSTRIDIUM HISTOLYTICUM
     Dosage: UNK UNKNOWN, UNKNOWN; CYCLE ONE, INJECTION TWO
     Route: 026
     Dates: start: 20190904
  3. LIPITOR [Concomitant]
     Active Substance: ATORVASTATIN CALCIUM
     Indication: BLOOD CHOLESTEROL INCREASED
  4. XIAFLEX [Suspect]
     Active Substance: COLLAGENASE CLOSTRIDIUM HISTOLYTICUM
     Indication: PEYRONIE^S DISEASE
     Dosage: UNK UNKNOWN, UNKNOWN; CYCLE ONE, INJECTION ONE
     Route: 026
     Dates: start: 20190904

REACTIONS (8)
  - Pain [Not Recovered/Not Resolved]
  - Genital contusion [Not Recovered/Not Resolved]
  - Contusion [Not Recovered/Not Resolved]
  - Genital swelling [Recovering/Resolving]
  - Penile swelling [Recovering/Resolving]
  - Swelling [Recovering/Resolving]
  - Penile contusion [Not Recovered/Not Resolved]
  - Penile erythema [Unknown]

NARRATIVE: CASE EVENT DATE: 20190906
